FAERS Safety Report 8975474 (Version 2)
Quarter: 2012Q4

REPORT INFORMATION
  Report Type: 
  Country: US (occurrence: US)
  Receive Date: 20121219
  Receipt Date: 20121221
  Transmission Date: 20130627
  Serious: No
  Sender: FDA-Public Use
  Company Number: US-PFIZER INC-2012321809

PATIENT
  Age: 49 Year
  Sex: Male
  Weight: 61.22 kg

DRUGS (5)
  1. CHANTIX [Suspect]
     Indication: SMOKING CESSATION THERAPY
     Dosage: 0.5 mg, daily
     Route: 048
     Dates: start: 201211
  2. CHANTIX [Suspect]
     Dosage: UNK
     Route: 048
     Dates: start: 201211
  3. LANTUS [Concomitant]
     Indication: DIABETES
     Dosage: 14 units in the morning and 12 units at night
  4. HUMALOG [Concomitant]
     Indication: DIABETES
     Dosage: UNK, three to four times a day
  5. LISINOPRIL [Concomitant]
     Indication: BLOOD PRESSURE HIGH
     Dosage: 10 mg, daily

REACTIONS (2)
  - Cough [Not Recovered/Not Resolved]
  - Abnormal dreams [Unknown]
